FAERS Safety Report 13840333 (Version 1)
Quarter: 2017Q3

REPORT INFORMATION
  Report Type: Spontaneous
  Country: US (occurrence: US)
  Receive Date: 20170807
  Receipt Date: 20170807
  Transmission Date: 20171127
  Serious: No
  Sender: FDA-Public Use
  Company Number: US-AEGERION PHARMACEUTICAL, INC-AEGR003106

PATIENT
  Sex: Female
  Weight: 9.1 kg

DRUGS (2)
  1. METRELEPTIN [Suspect]
     Active Substance: METRELEPTIN
     Dosage: 0.5 MG, QD
     Route: 058
  2. METRELEPTIN [Suspect]
     Active Substance: METRELEPTIN
     Indication: CONGENITAL GENERALISED LIPODYSTROPHY
     Dosage: 0.55 MG, QD
     Route: 058
     Dates: start: 20150311

REACTIONS (1)
  - Ill-defined disorder [Unknown]
